FAERS Safety Report 9080386 (Version 1)
Quarter: 2013Q1

REPORT INFORMATION
  Report Type: Spontaneous
  Country: CN (occurrence: CN)
  Receive Date: 20130131
  Receipt Date: 20130131
  Transmission Date: 20140127
  Serious: Yes (Other)
  Sender: FDA-Public Use
  Company Number: PHHY2012CN126283

PATIENT
  Age: 16 Year
  Sex: Male
  Weight: 52 kg

DRUGS (1)
  1. VOTALIN [Suspect]
     Indication: MUSCLE STRAIN
     Dosage: 1 G, BID
     Route: 061
     Dates: start: 20111120, end: 20111120

REACTIONS (3)
  - Anaphylactoid reaction [Recovering/Resolving]
  - Flushing [Recovering/Resolving]
  - Oedema [Recovering/Resolving]
